FAERS Safety Report 4833741-2 (Version None)
Quarter: 2005Q4

REPORT INFORMATION
  Report Type: 
  Country: None (occurrence: None)
  Receive Date: 20051116
  Receipt Date: 20051116
  Transmission Date: 20060501
  Serious: Yes (Hospitalization, Other)
  Sender: FDA-Public Use
  Company Number: None

PATIENT
  Sex: Male
  Weight: 70 kg

DRUGS (5)
  1. DAUNORUBICIN [Suspect]
     Indication: HAEMATOPOIETIC NEOPLASM
     Dosage: SEE IMAGE
     Dates: start: 20050811
  2. CYTARABINE [Suspect]
     Dosage: SEE IMAGE
     Dates: start: 20050811, end: 20050817
  3. ZOSUQUIDAR [Suspect]
     Dosage: SEE IMAGE
     Dates: start: 20050811
  4. PLACEBO [Suspect]
     Dosage: SEE IMAGE
     Dates: start: 20050811
  5. CYTARABINE [Suspect]
     Dosage: SEE IMAGE
     Dates: start: 20050811, end: 20050817

REACTIONS (4)
  - CLOSTRIDIUM DIFFICILE TOXIN TEST POSITIVE [None]
  - DIARRHOEA [None]
  - PAIN [None]
  - PYREXIA [None]
